FAERS Safety Report 9366798 (Version 1)
Quarter: 2013Q2

REPORT INFORMATION
  Report Type: Spontaneous
  Country: FR (occurrence: FR)
  Receive Date: 20130625
  Receipt Date: 20130625
  Transmission Date: 20140414
  Serious: Yes (Hospitalization)
  Sender: FDA-Public Use
  Company Number: FR-TEVA-414977ISR

PATIENT
  Age: 75 Year
  Sex: Male
  Weight: 103 kg

DRUGS (9)
  1. FUROSEMIDE TEVA 40 MG [Suspect]
     Indication: PULMONARY HYPERTENSION
     Dosage: 120 MILLIGRAM DAILY; 40 MG IN THE MORNING, 80 MG AT LUNCH
     Route: 048
  2. LASILIX 60 RETARD CAPSULES [Concomitant]
     Route: 048
  3. TRACLEER [Concomitant]
  4. REVATIO [Concomitant]
  5. UNKNOWN [Concomitant]
  6. UNKNOWN [Concomitant]
     Dosage: 3 DOSAGE FORMS DAILY; ONE DOSE IN THE MORNING, TWO DOSES IN THE EVENING,
  7. PREVISCAN [Concomitant]
  8. UNKNOWN [Concomitant]
  9. CORDARONE [Concomitant]
     Dosage: EVERY OTHER DAY

REACTIONS (8)
  - Pulmonary oedema [Recovered/Resolved]
  - Oedema peripheral [Recovered/Resolved]
  - Generalised oedema [Recovered/Resolved]
  - Weight increased [Recovered/Resolved]
  - Pyrexia [Recovered/Resolved]
  - Infection [Recovered/Resolved]
  - Streptococcal infection [Recovered/Resolved]
  - Loss of consciousness [Recovered/Resolved]
